FAERS Safety Report 13528393 (Version 1)
Quarter: 2017Q2

REPORT INFORMATION
  Report Type: Report from Study
  Country: US (occurrence: US)
  Receive Date: 20170509
  Receipt Date: 20170509
  Transmission Date: 20170830
  Serious: No
  Sender: FDA-Public Use
  Company Number: US-AMGEN-USASL2017067629

PATIENT
  Sex: Female

DRUGS (1)
  1. ENBREL [Suspect]
     Active Substance: ETANERCEPT
     Indication: RHEUMATOID ARTHRITIS
     Dosage: UNK UNK, QWK
     Route: 065

REACTIONS (6)
  - Oropharyngeal pain [Unknown]
  - Malaise [Unknown]
  - Grip strength decreased [Unknown]
  - Nasal discomfort [Unknown]
  - Tinnitus [Unknown]
  - Tremor [Unknown]

NARRATIVE: CASE EVENT DATE: 2014
